FAERS Safety Report 7041113-8 (Version None)
Quarter: 2010Q4

REPORT INFORMATION
  Report Type: 
  Country: None (occurrence: None)
  Receive Date: 20101013
  Receipt Date: 20101005
  Transmission Date: 20110411
  Serious: Yes (Hospitalization)
  Sender: FDA-Public Use
  Company Number: CA-JNJFOC-20101001723

PATIENT
  Age: 59 Year
  Sex: Male
  Weight: 79 kg

DRUGS (9)
  1. SIMPONI [Suspect]
     Indication: RHEUMATOID ARTHRITIS
     Route: 058
  2. METHOTREXATE [Suspect]
     Indication: RHEUMATOID ARTHRITIS
     Route: 048
  3. DILAUDID [Suspect]
     Indication: RHEUMATOID ARTHRITIS
     Route: 048
  4. DILAUDID [Suspect]
     Indication: PAIN MANAGEMENT
     Route: 048
  5. ATACAND HCT [Concomitant]
     Indication: HYPERTENSION
     Route: 048
  6. NORVASC [Concomitant]
     Indication: HYPERTENSION
     Route: 048
  7. LIPITOR [Concomitant]
     Indication: DYSLIPIDAEMIA
     Route: 048
  8. LASIX [Concomitant]
     Indication: PROPHYLAXIS
     Route: 048
  9. FOLIC ACID [Concomitant]
     Indication: PROPHYLAXIS
     Dosage: 6-7 DAYS PER WEEK
     Route: 048

REACTIONS (1)
  - ABDOMINAL PAIN [None]
